FAERS Safety Report 18431748 (Version 1)
Quarter: 2020Q4

REPORT INFORMATION
  Report Type: Spontaneous
  Country: GB (occurrence: GB)
  Receive Date: 20201027
  Receipt Date: 20201027
  Transmission Date: 20210114
  Serious: Yes (Life-Threatening, Other)
  Sender: FDA-Public Use
  Company Number: GB-TEVA-2020-GB-1840902

PATIENT
  Age: 67 Year
  Sex: Female

DRUGS (1)
  1. CARBAMAZEPINE. [Suspect]
     Active Substance: CARBAMAZEPINE
     Indication: TRIGEMINAL NEURALGIA
     Dosage: 200 MG
     Route: 048
     Dates: start: 20200901, end: 20200917

REACTIONS (5)
  - Leukopenia [Not Recovered/Not Resolved]
  - Hyponatraemia [Not Recovered/Not Resolved]
  - Myalgia [Unknown]
  - Lymphopenia [Unknown]
  - Pyrexia [Unknown]

NARRATIVE: CASE EVENT DATE: 20200914
